FAERS Safety Report 18639341 (Version 1)
Quarter: 2020Q4

REPORT INFORMATION
  Report Type: Report from Study
  Country: US (occurrence: US)
  Receive Date: 20201219
  Receipt Date: 20201219
  Transmission Date: 20210114
  Serious: Yes (Other)
  Sender: FDA-Public Use
  Company Number: NVSC2020US329837

PATIENT
  Sex: Male

DRUGS (1)
  1. ENTRESTO [Suspect]
     Active Substance: SACUBITRIL\VALSARTAN
     Indication: PRODUCT USED FOR UNKNOWN INDICATION
     Dosage: 50 MG, QD (24MG/26MG)
     Route: 048

REACTIONS (6)
  - Product dose omission issue [Recovered/Resolved with Sequelae]
  - Hypoaesthesia [Unknown]
  - Pain in extremity [Unknown]
  - Loss of consciousness [Unknown]
  - Memory impairment [Unknown]
  - Headache [Unknown]
